FAERS Safety Report 8424288-5 (Version None)
Quarter: 2012Q2

REPORT INFORMATION
  Report Type: 
  Country: None (occurrence: None)
  Receive Date: 20120608
  Receipt Date: 20111219
  Transmission Date: 20120825
  Serious: No
  Sender: FDA-Public Use
  Company Number: US-ASTRAZENECA-2011SE76763

PATIENT
  Age: 75 Year
  Sex: Female
  Weight: 58.5 kg

DRUGS (10)
  1. ASPIRIN [Concomitant]
     Indication: ISCHAEMIC HEART DISEASE PROPHYLAXIS
  2. SINGULAIR [Concomitant]
  3. RESTASIS [Concomitant]
     Indication: EYE DISORDER
  4. PULMICORT [Suspect]
     Indication: RHINORRHOEA
     Dosage: TWO TIMES A DAY
     Route: 055
     Dates: start: 20111213, end: 20111213
  5. PULMICORT [Suspect]
     Indication: DYSPHONIA
     Dosage: TWO TIMES A DAY
     Route: 055
     Dates: start: 20111213, end: 20111213
  6. CALCIUM PLUS VITAMIN D [Concomitant]
  7. FOLIC ACID [Concomitant]
  8. PLATINOL [Concomitant]
  9. MICARDIS [Concomitant]
     Indication: BLOOD PRESSURE ABNORMAL
  10. RETIN-A [Concomitant]
     Indication: SKIN CANCER

REACTIONS (5)
  - DIZZINESS [None]
  - RHINORRHOEA [None]
  - OVERDOSE [None]
  - DRUG PRESCRIBING ERROR [None]
  - WRONG TECHNIQUE IN DRUG USAGE PROCESS [None]
